FAERS Safety Report 12996285 (Version 1)
Quarter: 2016Q4

REPORT INFORMATION
  Report Type: Spontaneous
  Country: FR (occurrence: FR)
  Receive Date: 20161203
  Receipt Date: 20161203
  Transmission Date: 20170207
  Serious: Yes (Hospitalization)
  Sender: FDA-Public Use
  Company Number: FR-AUROBINDO-AUR-APL-2016-14595

PATIENT
  Age: 75 Year
  Sex: Female

DRUGS (2)
  1. LEVOFLOXACIN ARROW [Suspect]
     Active Substance: LEVOFLOXACIN
     Indication: OSTEONECROSIS
     Dosage: 1 DF, TWO TIMES A DAY
     Route: 048
     Dates: start: 20161001, end: 20161024
  2. RIFADINE                           /00146901/ [Suspect]
     Active Substance: RIFAMPIN
     Indication: OSTEONECROSIS
     Dosage: 150 MG, TWO TIMES A DAY
     Route: 048
     Dates: start: 20160930, end: 20161021

REACTIONS (1)
  - Drug reaction with eosinophilia and systemic symptoms [Not Recovered/Not Resolved]

NARRATIVE: CASE EVENT DATE: 20161018
